FAERS Safety Report 19230544 (Version 1)
Quarter: 2021Q2

REPORT INFORMATION
  Report Type: Spontaneous
  Country: US (occurrence: US)
  Receive Date: 20210507
  Receipt Date: 20210507
  Transmission Date: 20210717
  Serious: Yes (Other)
  Sender: FDA-Public Use
  Company Number: US-SUN PHARMACEUTICAL INDUSTRIES LTD-2021R1-295387

PATIENT
  Age: 81 Year
  Sex: Female

DRUGS (4)
  1. VERAPAMIL [Suspect]
     Active Substance: VERAPAMIL HYDROCHLORIDE
     Indication: BLOOD PRESSURE INCREASED
     Dosage: UNK
     Route: 065
  2. ADRENALINE [Suspect]
     Active Substance: EPINEPHRINE
     Indication: BLOOD PRESSURE INCREASED
     Dosage: UNK
     Route: 065
  3. NORADRENALINE [Suspect]
     Active Substance: NOREPINEPHRINE
     Indication: BLOOD PRESSURE INCREASED
     Dosage: UNK
     Route: 065
  4. PHENYLEPHRINE [Suspect]
     Active Substance: PHENYLEPHRINE HYDROCHLORIDE
     Indication: BLOOD PRESSURE INCREASED
     Dosage: UNK
     Route: 065

REACTIONS (4)
  - Mitral valve incompetence [Recovering/Resolving]
  - Acute kidney injury [Recovered/Resolved]
  - Hypertrophic cardiomyopathy [Recovered/Resolved]
  - Cardiogenic shock [Recovering/Resolving]
